FAERS Safety Report 7302623-9 (Version None)
Quarter: 2011Q1

REPORT INFORMATION
  Report Type: 
  Country: None (occurrence: None)
  Receive Date: 20110218
  Receipt Date: 20110211
  Transmission Date: 20110831
  Serious: Yes (Hospitalization)
  Sender: FDA-Public Use
  Company Number: US-CEPHALON-2011000558

PATIENT
  Sex: Male
  Weight: 79 kg

DRUGS (8)
  1. LEVOTHYROXINE [Concomitant]
     Dates: start: 20100107
  2. MIRALAX [Concomitant]
     Dates: start: 20100901
  3. FOLIC ACID/MULTIVITAMIN [Concomitant]
     Dates: start: 20090512
  4. VITAMIN-MINERAL COMPOUND TAB [Concomitant]
     Dates: start: 20090511
  5. ARICEPT [Concomitant]
     Dates: start: 20090512
  6. ARMODAFINIL [Suspect]
     Indication: DEMENTIA WITH LEWY BODIES
     Route: 048
     Dates: start: 20101118
  7. ASPIRIN [Concomitant]
     Dates: start: 20100701
  8. SIMVASTATIN [Concomitant]
     Dates: start: 20090512

REACTIONS (1)
  - PNEUMONIA ASPIRATION [None]
